FAERS Safety Report 6048383-3 (Version None)
Quarter: 2009Q1

REPORT INFORMATION
  Report Type: 
  Country: None (occurrence: None)
  Receive Date: 20090123
  Receipt Date: 20090115
  Transmission Date: 20090719
  Serious: Yes (Other)
  Sender: FDA-Public Use
  Company Number: CA-ASTRAZENECA-2009UW01636

PATIENT
  Age: 65 Year
  Sex: Female
  Weight: 72.6 kg

DRUGS (2)
  1. CRESTOR [Suspect]
     Route: 048
  2. THYROID HORMONES [Concomitant]

REACTIONS (32)
  - AMNESIA [None]
  - ANOREXIA [None]
  - ARTHRALGIA [None]
  - ASTHENIA [None]
  - BLOOD TRIGLYCERIDES INCREASED [None]
  - CARPAL TUNNEL SYNDROME [None]
  - DIZZINESS [None]
  - DYSPHAGIA [None]
  - EYE DISORDER [None]
  - FALL [None]
  - FATIGUE [None]
  - GRIP STRENGTH DECREASED [None]
  - HEADACHE [None]
  - HIGH DENSITY LIPOPROTEIN DECREASED [None]
  - HOT FLUSH [None]
  - INSOMNIA [None]
  - JOINT STIFFNESS [None]
  - MEAN CELL HAEMOGLOBIN [None]
  - MOVEMENT DISORDER [None]
  - MUSCLE SPASMS [None]
  - MUSCULOSKELETAL STIFFNESS [None]
  - NAUSEA [None]
  - NEUTROPHIL COUNT INCREASED [None]
  - OEDEMA PERIPHERAL [None]
  - PAIN [None]
  - PARAESTHESIA [None]
  - PRESYNCOPE [None]
  - RED CELL DISTRIBUTION WIDTH DECREASED [None]
  - SENSATION OF HEAVINESS [None]
  - VITAMIN B12 DECREASED [None]
  - WEIGHT DECREASED [None]
  - WHITE BLOOD CELL COUNT INCREASED [None]
